FAERS Safety Report 5720215-X (Version None)
Quarter: 2008Q2

REPORT INFORMATION
  Report Type: 
  Country: None (occurrence: None)
  Receive Date: 20080428
  Receipt Date: 20071002
  Transmission Date: 20081010
  Serious: No
  Sender: FDA-Public Use
  Company Number: US-AMGEN-US245996

PATIENT
  Sex: Female

DRUGS (3)
  1. SENSIPAR [Suspect]
     Indication: HYPERPARATHYROIDISM SECONDARY
     Route: 048
     Dates: start: 20061101
  2. TUMS [Concomitant]
     Route: 048
  3. ROCALTROL [Concomitant]
     Route: 065

REACTIONS (2)
  - NECK PAIN [None]
  - PARAESTHESIA [None]
